FAERS Safety Report 9150057 (Version 1)
Quarter: 2013Q1

REPORT INFORMATION
  Report Type: Spontaneous
  Country: US (occurrence: US)
  Receive Date: 20130308
  Receipt Date: 20130308
  Transmission Date: 20140127
  Serious: No
  Sender: FDA-Public Use
  Company Number: US-009507513-1302USA010356

PATIENT
  Age: 69 Year
  Sex: Female

DRUGS (2)
  1. JANUMET XR [Suspect]
     Indication: DIABETES MELLITUS
     Dosage: 50/1000 MG BID
     Route: 048
     Dates: start: 20130217
  2. ZIAC [Concomitant]

REACTIONS (1)
  - Flatulence [Not Recovered/Not Resolved]
